FAERS Safety Report 19924370 (Version 1)
Quarter: 2021Q4

REPORT INFORMATION
  Report Type: Spontaneous
  Country: SE (occurrence: SE)
  Receive Date: 20211006
  Receipt Date: 20211006
  Transmission Date: 20220303
  Serious: Yes (Congenital Anomaly, Other)
  Sender: FDA-Public Use
  Company Number: SE-SA-SAC20210519000424

PATIENT

DRUGS (5)
  1. LEVETIRACETAM [Suspect]
     Active Substance: LEVETIRACETAM
     Indication: Product used for unknown indication
     Dosage: UNK (DURING 1ST, 2ND, 3RD TRIMESTER OF PREGNANCY)
     Route: 064
  2. LAMOTRIGINE [Suspect]
     Active Substance: LAMOTRIGINE
     Indication: Product used for unknown indication
     Dosage: UNK (DURING 1ST TRIMESTER OF PREGNANCY)
     Route: 064
  3. CLOBAZAM [Suspect]
     Active Substance: CLOBAZAM
     Indication: Product used for unknown indication
     Dosage: 10 MILLIGRAM, QD (10 MG (1ST TRIMESTER OF PREGNANCY))
     Route: 064
  4. CLOBAZAM [Suspect]
     Active Substance: CLOBAZAM
     Dosage: UNK (2ND AND 3RD TRIMESTER OF PREGNANCY   )
     Route: 064
  5. VALPROIC ACID [Suspect]
     Active Substance: VALPROIC ACID
     Indication: Product used for unknown indication
     Dosage: UNK (DURING 1ST, 2ND, 3RD TRIMESTER OF PREGNANCY)
     Route: 064

REACTIONS (2)
  - Ventricular septal defect [Unknown]
  - Foetal exposure during pregnancy [Recovered/Resolved]
